FAERS Safety Report 5463818-2 (Version None)
Quarter: 2007Q3

REPORT INFORMATION
  Report Type: 
  Country: None (occurrence: None)
  Receive Date: 20070919
  Receipt Date: 20070910
  Transmission Date: 20080115
  Serious: Yes (Death)
  Sender: FDA-Public Use
  Company Number: KADN20070082

PATIENT
  Age: 41 Year
  Sex: Female

DRUGS (2)
  1. KADIAN [Suspect]
     Indication: BACK PAIN
     Dosage: 1 CAP BID, PER ORAL
     Route: 048
     Dates: start: 20070612, end: 20070101
  2. LORTAB [Suspect]
     Indication: BACK PAIN
     Dosage: 7.5 MG QID, PER ORAL
     Route: 048
     Dates: end: 20070101

REACTIONS (1)
  - DEATH [None]
